FAERS Safety Report 6258829-3 (Version None)
Quarter: 2009Q3

REPORT INFORMATION
  Report Type: 
  Country: None (occurrence: None)
  Receive Date: 20090707
  Receipt Date: 20090324
  Transmission Date: 20100115
  Serious: Yes (Other)
  Sender: FDA-Public Use
  Company Number: TR-ELI_LILLY_AND_COMPANY-TR200907000384

PATIENT
  Age: 64 Year
  Sex: Female

DRUGS (5)
  1. HUMALOG MIX 75/25 [Suspect]
     Indication: DIABETES MELLITUS
     Dosage: 28 U, EACH MORNING
     Route: 058
     Dates: start: 19990101
  2. HUMALOG MIX 75/25 [Suspect]
     Dosage: 18 U, EACH EVENING
     Route: 058
     Dates: start: 19990101
  3. GLUKOFEN [Concomitant]
     Indication: DIABETES MELLITUS
     Dosage: UNK, 2/D
     Route: 065
  4. BELOC ZOK [Concomitant]
     Indication: HYPERTENSION
     Dosage: UNK, DAILY (1/D)
     Route: 065
  5. CARDIOVASCULAR SYSTEM DRUGS [Concomitant]
     Indication: CARDIOVASCULAR DISORDER
     Dosage: UNK, DAILY (1/D)
     Route: 065

REACTIONS (4)
  - BLINDNESS [None]
  - BLOOD GLUCOSE ABNORMAL [None]
  - HYPOAESTHESIA [None]
  - PAIN IN EXTREMITY [None]
